FAERS Safety Report 21287164 (Version 1)
Quarter: 2022Q3

REPORT INFORMATION
  Report Type: Spontaneous
  Country: GB (occurrence: GB)
  Receive Date: 20220902
  Receipt Date: 20220902
  Transmission Date: 20221026
  Serious: Yes (Other)
  Sender: FDA-Public Use
  Company Number: GB-MHRA-MED-202208301626423150-QHSLB

PATIENT
  Age: 58 Year
  Sex: Female

DRUGS (2)
  1. DOCETAXEL [Suspect]
     Active Substance: DOCETAXEL
     Dosage: FIRST DOSE (CYCLE 4)
     Dates: start: 20220805
  2. DOCETAXEL [Suspect]
     Active Substance: DOCETAXEL
     Dosage: 500 ML (SECOND DOSE)
     Dates: start: 20220826

REACTIONS (4)
  - Flushing [Recovered/Resolved]
  - Abdominal pain [Recovered/Resolved]
  - Groin pain [Recovered/Resolved]
  - Diarrhoea [Recovered/Resolved]

NARRATIVE: CASE EVENT DATE: 20220826
